FAERS Safety Report 10016668 (Version 3)
Quarter: 2014Q2

REPORT INFORMATION
  Report Type: Spontaneous
  Country: US (occurrence: US)
  Receive Date: 20140317
  Receipt Date: 20140429
  Transmission Date: 20141212
  Serious: No
  Sender: FDA-Public Use
  Company Number: US-009507513-1402USA012976

PATIENT
  Sex: Male

DRUGS (9)
  1. LANSOPRAZOLE [Concomitant]
     Dosage: 30MG, 1 DAILY
  2. PEGINTRON [Suspect]
     Indication: HEPATITIS C
     Dosage: 0.4 ML, ONCE A WEEK, REDIPEN
     Route: 058
     Dates: start: 20140221
  3. REBETOL [Suspect]
     Indication: HEPATITIS C
     Dosage: 600 MG (3 PILLS), TWICE A DAY
     Route: 048
     Dates: start: 20140221
  4. SOVALDI [Concomitant]
     Dosage: ONE DAILY
     Route: 048
  5. SUBOXONE [Concomitant]
     Dosage: 3/4 TABLET SUBLINGUALLY, THREE TIMES DAILY
     Route: 060
  6. COZAAR [Concomitant]
     Dosage: ONE TWICE DAILY
  7. OMEPRAZOLE [Concomitant]
     Dosage: ONE DAILY
  8. CYMBALTA [Concomitant]
     Dosage: TWICE DAILY
  9. HYDROCHLOROTHIAZIDE (+) LOSARTAN POTASSIUM [Concomitant]
     Dosage: 12.5 MG, 1 DAILY

REACTIONS (10)
  - Sciatica [Unknown]
  - Flank pain [Unknown]
  - Retinal infarction [Recovered/Resolved]
  - Mood swings [Unknown]
  - Hypoaesthesia [Unknown]
  - Appetite disorder [Unknown]
  - Parosmia [Unknown]
  - Rash [Unknown]
  - Influenza like illness [Unknown]
  - Nausea [Unknown]
